FAERS Safety Report 10755391 (Version 2)
Quarter: 2015Q1

REPORT INFORMATION
  Report Type: Spontaneous
  Country: IT (occurrence: IT)
  Receive Date: 20150202
  Receipt Date: 20150209
  Transmission Date: 20150721
  Serious: Yes (Hospitalization)
  Sender: FDA-Public Use
  Company Number: IT-TEVA-537683ISR

PATIENT
  Age: 53 Year
  Sex: Female

DRUGS (6)
  1. LEXOTAN 2.5 MG/ML [Suspect]
     Active Substance: BROMAZEPAM
     Route: 048
     Dates: start: 20130701, end: 20130701
  2. XANAX [Suspect]
     Active Substance: ALPRAZOLAM
     Route: 048
     Dates: start: 20130701, end: 20130701
  3. ESCITALOPRAM ALTER [Concomitant]
  4. ENANTYUM [Concomitant]
     Active Substance: DEXKETOPROFEN TROMETAMOL
  5. PAROXETINE [Suspect]
     Active Substance: PAROXETINE\PAROXETINE HYDROCHLORIDE
     Route: 048
     Dates: start: 20130701, end: 20130701
  6. NUROFEN [Concomitant]
     Active Substance: IBUPROFEN

REACTIONS (3)
  - Toxicity to various agents [Recovered/Resolved]
  - Drug abuse [Recovered/Resolved]
  - Bradyphrenia [Recovered/Resolved]

NARRATIVE: CASE EVENT DATE: 20130701
